FAERS Safety Report 10150696 (Version 1)
Quarter: 2014Q2

REPORT INFORMATION
  Report Type: Spontaneous
  Country: US (occurrence: US)
  Receive Date: 20140502
  Receipt Date: 20140502
  Transmission Date: 20141212
  Serious: No
  Sender: FDA-Public Use
  Company Number: US-BAYER-2014-064796

PATIENT
  Age: 36 Year
  Sex: Female
  Weight: 58.05 kg

DRUGS (4)
  1. ALEVE CAPLET [Suspect]
     Indication: PAIN
     Dosage: 2 DF, PRN
     Route: 048
  2. ALEVE CAPLET [Suspect]
     Indication: HEADACHE
  3. ALEVE CAPLET [Suspect]
     Indication: DYSMENORRHOEA
  4. ALEVE CAPLET [Suspect]
     Indication: BACK PAIN

REACTIONS (1)
  - Drug ineffective [None]
